FAERS Safety Report 7770376-6 (Version None)
Quarter: 2011Q3

REPORT INFORMATION
  Report Type: 
  Country: None (occurrence: None)
  Receive Date: 20110922
  Receipt Date: 20110218
  Transmission Date: 20111222
  Serious: No
  Sender: FDA-Public Use
  Company Number: US-ASTRAZENECA-2011SE09549

PATIENT
  Age: 28 Year
  Sex: Male

DRUGS (2)
  1. MARIJUANA [Concomitant]
  2. SEROQUEL [Suspect]
     Indication: BIPOLAR DISORDER
     Route: 048

REACTIONS (12)
  - INSOMNIA [None]
  - WITHDRAWAL SYNDROME [None]
  - HYPOAESTHESIA [None]
  - POLLAKIURIA [None]
  - DRUG DOSE OMISSION [None]
  - MYDRIASIS [None]
  - ABDOMINAL DISTENSION [None]
  - APHAGIA [None]
  - APPETITE DISORDER [None]
  - FEELING ABNORMAL [None]
  - WRONG TECHNIQUE IN DRUG USAGE PROCESS [None]
  - IRRITABILITY [None]
